FAERS Safety Report 7769160-9 (Version None)
Quarter: 2011Q3

REPORT INFORMATION
  Report Type: 
  Country: None (occurrence: None)
  Receive Date: 20110922
  Receipt Date: 20110919
  Transmission Date: 20111222
  Serious: Yes (Hospitalization)
  Sender: FDA-Public Use
  Company Number: DE-ELI_LILLY_AND_COMPANY-DE201109004817

PATIENT
  Sex: Female

DRUGS (8)
  1. FOLIC ACID [Concomitant]
  2. METHOTREXATE [Concomitant]
  3. PANTOPRAZOLE [Concomitant]
  4. NOVAMINSULFON [Concomitant]
     Dosage: UNK
     Dates: start: 20110801
  5. VALORON [Concomitant]
  6. ARCOXIA [Concomitant]
  7. FORTEO [Suspect]
     Indication: OSTEOPOROSIS
     Dosage: UNK, QD
     Route: 058
     Dates: start: 20101202
  8. CALCIUM VIT D [Concomitant]

REACTIONS (2)
  - LIMB DISCOMFORT [None]
  - GAIT DISTURBANCE [None]
